FAERS Safety Report 8177173 (Version 2)
Quarter: 2012Q4

REPORT INFORMATION
  Report Type: Report from Study
  Country: US (occurrence: US)
  Receive Date: 20111012
  Receipt Date: 20120912
  Transmission Date: 20130627
  Serious: Yes (Congenital Anomaly, Other)
  Sender: FDA-Public Use
  Company Number: US-UCBSA-8047071

PATIENT
  Sex: Male
  Weight: 2.66 kg

DRUGS (4)
  1. KEPPRA [Suspect]
     Route: 064
     Dates: start: 20081116
  2. PRENATAL VITAMINS [Concomitant]
     Indication: SUPPLEMENTATION THERAPY
     Dosage: Dose Freq.: DAILY
     Route: 064
  3. FOLIC ACID [Concomitant]
     Indication: SUPPLEMENTATION THERAPY
  4. MUCINEX [Concomitant]
     Indication: BRONCHITIS CHRONIC

REACTIONS (3)
  - Foetal cerebrovascular disorder [Unknown]
  - Gross motor delay [Unknown]
  - Foetal exposure during pregnancy [Unknown]
